FAERS Safety Report 4791083-8 (Version None)
Quarter: 2005Q4

REPORT INFORMATION
  Report Type: 
  Country: None (occurrence: None)
  Receive Date: 20051005
  Receipt Date: 20050916
  Transmission Date: 20060501
  Serious: Yes (Other)
  Sender: FDA-Public Use
  Company Number: JP_050907624

PATIENT
  Age: 52 Year
  Sex: Female

DRUGS (3)
  1. ZYPREXA [Suspect]
     Dosage: 20 MG/1 AT BEDTIME
  2. RISPERDAL [Concomitant]
  3. DORAL [Concomitant]

REACTIONS (1)
  - RETROPERITONEAL FIBROSIS [None]
